FAERS Safety Report 8622871-5 (Version None)
Quarter: 2012Q3

REPORT INFORMATION
  Report Type: 
  Country: None (occurrence: None)
  Receive Date: 20120827
  Receipt Date: 20120820
  Transmission Date: 20120928
  Serious: Yes (Other)
  Sender: FDA-Public Use
  Company Number: PHHY2012MX072712

PATIENT
  Sex: Female

DRUGS (2)
  1. IMATINIB MESYLATE [Suspect]
     Indication: LEUKAEMIA
     Dosage: 400 MG, DAILY
     Route: 048
     Dates: start: 20120701, end: 20120818
  2. PANTOPRAZOLE [Concomitant]
     Indication: ULCER

REACTIONS (4)
  - VOMITING [None]
  - ASTHENIA [None]
  - DIARRHOEA HAEMORRHAGIC [None]
  - DIZZINESS [None]
